FAERS Safety Report 9380853 (Version 1)
Quarter: 2013Q3

REPORT INFORMATION
  Report Type: Report from Study
  Country: US (occurrence: US)
  Receive Date: 20130702
  Receipt Date: 20130702
  Transmission Date: 20140515
  Serious: Yes (Other)
  Sender: FDA-Public Use
  Company Number: US-ELI_LILLY_AND_COMPANY-US201306007464

PATIENT
  Age: 31 Year
  Sex: Female

DRUGS (2)
  1. DULOXETINE HYDROCHLORIDE [Suspect]
     Indication: ANXIETY
     Dosage: 60 MG, QD
  2. BENADRYL /00000402/ [Suspect]
     Indication: URTICARIA
     Dosage: UNK, UNKNOWN

REACTIONS (4)
  - Urticaria [Unknown]
  - Paraesthesia [Unknown]
  - Dry throat [Unknown]
  - Drug dose omission [Unknown]
